FAERS Safety Report 17799108 (Version 1)
Quarter: 2020Q2

REPORT INFORMATION
  Report Type: Spontaneous
  Country: ES (occurrence: ES)
  Receive Date: 20200518
  Receipt Date: 20200518
  Transmission Date: 20200714
  Serious: Yes (Hospitalization)
  Sender: FDA-Public Use
  Company Number: ES-TEVA-2020-ES-1235526

PATIENT
  Age: 48 Year
  Sex: Female

DRUGS (7)
  1. HIDROXICLOROQUINA (2143A) [Suspect]
     Active Substance: HYDROXYCHLOROQUINE
     Indication: CORONAVIRUS INFECTION
  2. COLCHICINA (142A) [Suspect]
     Active Substance: COLCHICINE
     Dosage: 1 U BREAKFAST
     Route: 048
     Dates: start: 20200408, end: 20200414
  3. TOCILIZUMAB (8289A) [Suspect]
     Active Substance: TOCILIZUMAB
     Indication: SEVERE ACUTE RESPIRATORY SYNDROME
  4. AZITROMICINA (7019A) [Suspect]
     Active Substance: AZITHROMYCIN
     Indication: CORONAVIRUS INFECTION
     Dosage: 500 MILLIGRAM DAILY;
     Route: 048
     Dates: start: 20200406, end: 20200411
  5. AZITROMICINA (7019A) [Suspect]
     Active Substance: AZITHROMYCIN
     Indication: PNEUMONIA
  6. HIDROXICLOROQUINA (2143A) [Suspect]
     Active Substance: HYDROXYCHLOROQUINE
     Indication: PNEUMONIA
     Dosage: 400 MILLIGRAM DAILY;
     Route: 048
     Dates: start: 20200406, end: 20200411
  7. TOCILIZUMAB (8289A) [Suspect]
     Active Substance: TOCILIZUMAB
     Indication: CORONAVIRUS INFECTION
     Dosage: 600 MG
     Route: 042
     Dates: start: 20200407, end: 20200407

REACTIONS (1)
  - Hepatitis [Recovered/Resolved]

NARRATIVE: CASE EVENT DATE: 20200412
